FAERS Safety Report 26218407 (Version 1)
Quarter: 2025Q4

REPORT INFORMATION
  Report Type: Report from Study
  Country: CA (occurrence: CA)
  Receive Date: 20251231
  Receipt Date: 20251231
  Transmission Date: 20260118
  Serious: Yes (Other)
  Sender: OTSUKA
  Company Number: CA-MMM-Otsuka-NOYE7DL6

PATIENT
  Sex: Female

DRUGS (2)
  1. ARIPIPRAZOLE [Suspect]
     Active Substance: ARIPIPRAZOLE
     Indication: Product used for unknown indication
     Dosage: 300 MG EVERY 4 WEEKS (DECREASED DOSE)
  2. ARIPIPRAZOLE [Suspect]
     Active Substance: ARIPIPRAZOLE
     Dosage: UNK (INITIAL DOSE)
     Route: 065

REACTIONS (3)
  - Hallucination, auditory [Recovering/Resolving]
  - Poor quality sleep [Recovering/Resolving]
  - Irritability [Recovering/Resolving]
